FAERS Safety Report 15804557 (Version 3)
Quarter: 2019Q4

REPORT INFORMATION
  Report Type: Report from Study
  Country: PL (occurrence: PL)
  Receive Date: 20190109
  Receipt Date: 20191110
  Transmission Date: 20200122
  Serious: Yes (Death, Hospitalization, Other)
  Sender: FDA-Public Use
  Company Number: PHHY2018PL185651

PATIENT
  Age: 76 Year
  Sex: Male
  Weight: 73 kg

DRUGS (5)
  1. MIDOSTAURIN [Suspect]
     Active Substance: MIDOSTAURIN
     Dosage: 100 MG, QD (2 TABLETS 25 MG BID)
     Route: 048
     Dates: start: 20181027, end: 20181110
  2. MIDOSTAURIN [Suspect]
     Active Substance: MIDOSTAURIN
     Dosage: UNK
     Route: 048
     Dates: start: 20180929, end: 20181013
  3. MIDOSTAURIN [Suspect]
     Active Substance: MIDOSTAURIN
     Indication: ACUTE MYELOID LEUKAEMIA
     Dosage: 100 MG, QD
     Route: 048
     Dates: start: 20180728, end: 20180808
  4. FUROSEMIDE. [Concomitant]
     Active Substance: FUROSEMIDE
     Indication: PRODUCT USED FOR UNKNOWN INDICATION
     Route: 065
  5. MIDOSTAURIN [Suspect]
     Active Substance: MIDOSTAURIN
     Dosage: UNK
     Route: 048
     Dates: start: 20180825, end: 20180909

REACTIONS (17)
  - Acute kidney injury [Fatal]
  - Liver injury [Fatal]
  - Dyspnoea [Fatal]
  - Breath sounds abnormal [Fatal]
  - Granulocytopenia [Unknown]
  - Acute myeloid leukaemia recurrent [Fatal]
  - Rales [Fatal]
  - Confusional state [Unknown]
  - Cardiac arrest [Fatal]
  - Cough [Fatal]
  - Respiratory failure [Fatal]
  - Pyrexia [Fatal]
  - Crepitations [Fatal]
  - Skin discolouration [Unknown]
  - Syncope [Unknown]
  - Pneumonia [Fatal]
  - Conjunctival hyperaemia [Unknown]

NARRATIVE: CASE EVENT DATE: 20181123
